FAERS Safety Report 5193501-2 (Version None)
Quarter: 2006Q4

REPORT INFORMATION
  Report Type: 
  Country: None (occurrence: None)
  Receive Date: 20061228
  Receipt Date: 20060609
  Transmission Date: 20070319
  Serious: No
  Sender: FDA-Public Use
  Company Number: US-GLAXOSMITHKLINE-A0608713A

PATIENT
  Age: 34 Year
  Sex: Female
  Weight: 65.9 kg

DRUGS (4)
  1. FLONASE [Suspect]
     Dosage: 2SPR PER DAY
     Route: 045
     Dates: end: 20060608
  2. PRENATAL VITAMINS [Concomitant]
     Indication: PREGNANCY
     Dosage: 1TAB PER DAY
     Route: 048
     Dates: start: 20020101
  3. IRON [Concomitant]
     Dosage: 30MG PER DAY
     Dates: start: 20020101, end: 20020716
  4. TYLENOL [Concomitant]
     Indication: PAIN

REACTIONS (1)
  - DRUG EXPOSURE DURING PREGNANCY [None]
